FAERS Safety Report 23366300 (Version 7)
Quarter: 2025Q3

REPORT INFORMATION
  Report Type: Spontaneous
  Country: EU (occurrence: EU)
  Receive Date: 20240104
  Receipt Date: 20250910
  Transmission Date: 20251021
  Serious: Yes (Death, Hospitalization)
  Sender: NOVARTIS
  Company Number: EU-ROCHE-2593522

PATIENT
  Age: 62 Year
  Sex: Female
  Weight: 110 kg

DRUGS (107)
  1. LAPATINIB [Suspect]
     Active Substance: LAPATINIB
     Indication: Breast cancer metastatic
     Dosage: 1250 MG, QD (MOST RECENT DOSE PRIOR TO AE 19/JUN/2020) (SOLUTION FOR INFUSION)
     Route: 065
     Dates: start: 20191209
  2. ANASTROZOLE [Suspect]
     Active Substance: ANASTROZOLE
     Indication: Breast cancer metastatic
     Dosage: 1 MG, QD, (MOST RECENT DOSE PRIOR TO AE 12/JUN/2019)
     Route: 048
     Dates: start: 20170918, end: 20190612
  3. ANASTROZOLE [Suspect]
     Active Substance: ANASTROZOLE
     Dosage: 1 MG, QD (MOST RECENT DOSE PRIOR TO AE 12/JUN/2019)
     Route: 042
  4. TYKERB [Suspect]
     Active Substance: LAPATINIB DITOSYLATE
     Indication: Breast cancer metastatic
     Dosage: 1250 MG, QD (MOST RECENT DOSE PRIOR TO AE 19/JUN/2020)
     Route: 048
     Dates: start: 20191209, end: 20200619
  5. TYKERB [Suspect]
     Active Substance: LAPATINIB DITOSYLATE
     Indication: HER2 positive breast cancer
  6. TAXOL [Suspect]
     Active Substance: PACLITAXEL
     Indication: Breast cancer metastatic
     Dosage: 80 MG, QW, (MOST RECENT DOSE PRIOR TO THE EVENT: 27/JUN/2017)
     Route: 042
     Dates: start: 20170303, end: 20170413
  7. TAXOL [Suspect]
     Active Substance: PACLITAXEL
     Indication: HER2 positive breast cancer
     Route: 042
     Dates: start: 20170420, end: 20170606
  8. TAXOL [Suspect]
     Active Substance: PACLITAXEL
     Route: 042
     Dates: start: 20170620, end: 20170620
  9. TAXOL [Suspect]
     Active Substance: PACLITAXEL
     Route: 042
     Dates: start: 20170627
  10. TAXOL [Suspect]
     Active Substance: PACLITAXEL
     Route: 042
     Dates: start: 20170912
  11. TAXOL [Suspect]
     Active Substance: PACLITAXEL
     Dosage: 3000 MG, QD (1500 MG, BID)
     Route: 042
     Dates: start: 20191209
  12. TAXOL [Suspect]
     Active Substance: PACLITAXEL
     Route: 048
     Dates: start: 20200901
  13. TAXOL [Suspect]
     Active Substance: PACLITAXEL
     Route: 042
     Dates: start: 20200924
  14. TAXOL [Suspect]
     Active Substance: PACLITAXEL
     Dosage: 130 MG, QW
     Route: 042
     Dates: start: 20170627, end: 20170912
  15. TAXOL [Suspect]
     Active Substance: PACLITAXEL
     Dosage: 90 MG, QW
     Route: 042
     Dates: start: 20200924, end: 20210610
  16. XELODA [Suspect]
     Active Substance: CAPECITABINE
     Indication: Breast cancer metastatic
     Dosage: 1500 MG, BID MOST RECENT DOSE PRIOR TO THE EVENT: 09/DEC/2019
     Route: 048
     Dates: start: 20191209, end: 20191230
  17. XELODA [Suspect]
     Active Substance: CAPECITABINE
     Indication: HER2 positive breast cancer
     Route: 048
     Dates: start: 20200120, end: 20200611
  18. XELODA [Suspect]
     Active Substance: CAPECITABINE
     Route: 048
     Dates: start: 20200618, end: 20200901
  19. XELODA [Suspect]
     Active Substance: CAPECITABINE
     Route: 048
     Dates: start: 20200901
  20. XELODA [Suspect]
     Active Substance: CAPECITABINE
     Route: 048
     Dates: start: 20191209, end: 20191230
  21. TRASTUZUMAB [Suspect]
     Active Substance: TRASTUZUMAB
     Indication: Breast cancer metastatic
     Dosage: 800 MG, Q4W, (MOST RECENT DOSE PRIOR TO THE EVENT: 20/JUN/2017)
     Route: 042
     Dates: start: 20170303, end: 20170303
  22. ADO-TRASTUZUMAB EMTANSINE [Suspect]
     Active Substance: ADO-TRASTUZUMAB EMTANSINE
     Indication: Breast cancer metastatic
     Dosage: 270 MG, Q3W (MOST RECENT DOSE PRIOR TO THE EVENT: 04/SEP/2019)
     Route: 065
     Dates: start: 20190612
  23. PERTUZUMAB [Suspect]
     Active Substance: PERTUZUMAB
     Indication: Breast cancer metastatic
     Dosage: 840 MG, Q4W (MOST RECENT DOSE PRIOR TO THE EVENT: 20/JUN/2020)
     Route: 048
     Dates: start: 20170303, end: 20170303
  24. HERCEPTIN [Suspect]
     Active Substance: TRASTUZUMAB
     Indication: Breast cancer metastatic
     Dosage: 600 MG, Q4W
     Route: 042
     Dates: start: 20170330, end: 20170606
  25. HERCEPTIN [Suspect]
     Active Substance: TRASTUZUMAB
     Indication: HER2 positive breast cancer
     Dosage: 800 MG, Q4W
     Route: 042
     Dates: start: 20170620
  26. HERCEPTIN [Suspect]
     Active Substance: TRASTUZUMAB
     Dosage: 800 MG, Q4W MOST RECENT DOSE PRIOR TO THE EVENT: 20/JUN/2017
     Route: 042
     Dates: start: 20170303, end: 20170303
  27. HERCEPTIN [Suspect]
     Active Substance: TRASTUZUMAB
     Dosage: 600 MG, Q4W MOST RECENT DOSE PRIOR TO THE EVENT: 14 MAY 2019
     Route: 042
     Dates: start: 20190514
  28. HERCEPTIN [Suspect]
     Active Substance: TRASTUZUMAB
     Dosage: 600 MG, Q4W
     Route: 042
     Dates: start: 20170620, end: 20190514
  29. ARIMIDEX [Suspect]
     Active Substance: ANASTROZOLE
     Indication: Breast cancer metastatic
     Dosage: 1 MG, QD (MOST RECENT DOSE PRIOR TO AE 12/JUN/2019)
     Route: 048
     Dates: start: 20170918, end: 20190612
  30. ARIMIDEX [Suspect]
     Active Substance: ANASTROZOLE
     Indication: HER2 positive breast cancer
  31. PERJETA [Suspect]
     Active Substance: PERTUZUMAB
     Indication: Breast cancer metastatic
     Dosage: 420 MG, Q4W
     Route: 042
     Dates: start: 20170330, end: 20170606
  32. PERJETA [Suspect]
     Active Substance: PERTUZUMAB
     Indication: HER2 positive breast cancer
     Dosage: 840 MG, Q4W MOST RECENT DOSE PRIOR TO THE EVENT: 20/JUN/2020
     Route: 042
     Dates: start: 20170303, end: 20170303
  33. PERJETA [Suspect]
     Active Substance: PERTUZUMAB
     Dosage: 420 MG, Q4W (MOST RECENT DOSE PRIOR TO THE EVENT: 14/MAY/2019)
     Route: 042
     Dates: start: 20190514
  34. PERJETA [Suspect]
     Active Substance: PERTUZUMAB
     Dosage: 840 MG, Q4W
     Route: 042
     Dates: start: 20170620
  35. PERJETA [Suspect]
     Active Substance: PERTUZUMAB
     Dosage: 420 MG, Q4W
     Route: 042
     Dates: start: 20170620, end: 20190514
  36. HALAVEN [Suspect]
     Active Substance: ERIBULIN MESYLATE
     Indication: HER2 positive breast cancer
     Route: 042
     Dates: start: 20210712, end: 20210825
  37. HALAVEN [Suspect]
     Active Substance: ERIBULIN MESYLATE
     Route: 042
  38. KADCYLA [Suspect]
     Active Substance: ADO-TRASTUZUMAB EMTANSINE
     Indication: Breast cancer metastatic
     Dosage: 360 MG, TIW (MOST RECENT DOSE PRIOR TO THE EVENT: 12 NOV 2019)
     Route: 042
     Dates: start: 20191112
  39. KADCYLA [Suspect]
     Active Substance: ADO-TRASTUZUMAB EMTANSINE
     Indication: HER2 positive breast cancer
     Dosage: 270 MG, TIW (MOST RECENT DOSE PRIOR TO THE EVENT: 04/SEP/2019)
     Route: 042
     Dates: start: 20190612, end: 20190703
  40. KADCYLA [Suspect]
     Active Substance: ADO-TRASTUZUMAB EMTANSINE
     Dosage: 360 MG, TIW
     Route: 042
     Dates: start: 20190724, end: 20190724
  41. KADCYLA [Suspect]
     Active Substance: ADO-TRASTUZUMAB EMTANSINE
     Dosage: 360 MG, TIW
     Route: 042
     Dates: start: 20190814, end: 20190814
  42. KADCYLA [Suspect]
     Active Substance: ADO-TRASTUZUMAB EMTANSINE
     Dosage: 270 MG, TIW
     Route: 042
     Dates: start: 20190904
  43. KADCYLA [Suspect]
     Active Substance: ADO-TRASTUZUMAB EMTANSINE
     Dosage: 1080 MG, QW (360 MG, TIW  )
     Route: 042
     Dates: start: 20190724, end: 20190724
  44. KADCYLA [Suspect]
     Active Substance: ADO-TRASTUZUMAB EMTANSINE
     Dosage: 1080 MG, QW (360 MG, TIW)
     Route: 042
     Dates: start: 20190814, end: 20190814
  45. KADCYLA [Suspect]
     Active Substance: ADO-TRASTUZUMAB EMTANSINE
     Dosage: MOST RECENT DOSE PRIOR TO THE EVENT: 12 NOV 2019
     Route: 042
     Dates: start: 20191112
  46. KADCYLA [Suspect]
     Active Substance: ADO-TRASTUZUMAB EMTANSINE
     Dosage: 810 MG, QW (270 MG, TIW)
     Route: 042
     Dates: start: 20190904
  47. KADCYLA [Suspect]
     Active Substance: ADO-TRASTUZUMAB EMTANSINE
     Dosage: 810 MG, QW MOST RECENT DOSE PRIOR TO THE EVENT: 04/SEP/2019
     Route: 042
     Dates: start: 20190612, end: 20190703
  48. KADCYLA [Suspect]
     Active Substance: ADO-TRASTUZUMAB EMTANSINE
     Dosage: 330 MG, TIW
     Route: 042
     Dates: start: 20190904, end: 20191112
  49. KADCYLA [Suspect]
     Active Substance: ADO-TRASTUZUMAB EMTANSINE
     Dosage: 300 MG, TIW
     Route: 042
     Dates: start: 20190724, end: 20190724
  50. TORSEMIDE [Concomitant]
     Active Substance: TORSEMIDE
     Indication: Hypertensive crisis
     Dosage: 5 MG, QD ONGOING = CHECKED
     Route: 048
     Dates: start: 20180313
  51. ZOLEDRONIC ACID [Concomitant]
     Active Substance: ZOLEDRONIC ACID
     Indication: Product used for unknown indication
     Route: 065
     Dates: start: 20170215, end: 20170320
  52. ZOLEDRONIC ACID [Concomitant]
     Active Substance: ZOLEDRONIC ACID
     Route: 065
     Dates: start: 20170320, end: 20170320
  53. ZOLEDRONIC ACID [Concomitant]
     Active Substance: ZOLEDRONIC ACID
     Route: 042
     Dates: start: 20200120
  54. ZOLEDRONIC ACID [Concomitant]
     Active Substance: ZOLEDRONIC ACID
     Route: 042
     Dates: start: 20170215
  55. ZOLEDRONIC ACID [Concomitant]
     Active Substance: ZOLEDRONIC ACID
     Route: 042
     Dates: start: 20170215
  56. ZOLEDRONIC ACID [Concomitant]
     Active Substance: ZOLEDRONIC ACID
     Route: 065
  57. LOSARTAN [Concomitant]
     Active Substance: LOSARTAN
     Indication: Hypertensive crisis
     Route: 065
     Dates: start: 20180313
  58. LOSARTAN [Concomitant]
     Active Substance: LOSARTAN
     Dosage: 50 MG, QD (ONGOING = CHECKED)
     Route: 065
     Dates: end: 20180312
  59. LOSARTAN [Concomitant]
     Active Substance: LOSARTAN
     Dosage: 50 MG, QD
     Route: 065
     Dates: start: 20180312
  60. OMEPRAZOLE [Concomitant]
     Active Substance: OMEPRAZOLE
     Indication: Product used for unknown indication
     Dosage: 40 UNK, QD
     Route: 048
     Dates: start: 20191209
  61. CITALOPRAM [Concomitant]
     Active Substance: CITALOPRAM
     Indication: Product used for unknown indication
     Route: 065
  62. CITALOPRAM [Concomitant]
     Active Substance: CITALOPRAM
     Dosage: 20 MG, QD
     Route: 048
  63. CITALOPRAM [Concomitant]
     Active Substance: CITALOPRAM
     Route: 065
  64. CITALOPRAM [Concomitant]
     Active Substance: CITALOPRAM
     Route: 065
  65. RANITIDINE [Concomitant]
     Active Substance: RANITIDINE
     Indication: Product used for unknown indication
     Route: 042
     Dates: start: 20180303, end: 20180912
  66. DEXAMETHASONE [Concomitant]
     Active Substance: DEXAMETHASONE
     Indication: Product used for unknown indication
     Route: 042
     Dates: start: 20170303, end: 20171003
  67. DEXAMETHASONE [Concomitant]
     Active Substance: DEXAMETHASONE
     Route: 042
     Dates: start: 20190612, end: 20191112
  68. DEXAMETHASONE [Concomitant]
     Active Substance: DEXAMETHASONE
     Route: 042
     Dates: start: 20200924
  69. DEXAMETHASONE [Concomitant]
     Active Substance: DEXAMETHASONE
     Route: 065
     Dates: start: 20200924
  70. DEXAMETHASONE [Concomitant]
     Active Substance: DEXAMETHASONE
     Route: 065
     Dates: start: 20200924
  71. DEXAMETHASONE [Concomitant]
     Active Substance: DEXAMETHASONE
     Route: 042
     Dates: start: 20190612, end: 20191112
  72. DEXAMETHASONE [Concomitant]
     Active Substance: DEXAMETHASONE
     Route: 042
     Dates: start: 20200924
  73. DEXAMETHASONE [Concomitant]
     Active Substance: DEXAMETHASONE
     Route: 042
     Dates: start: 20190612, end: 20191112
  74. DEXAMETHASONE [Concomitant]
     Active Substance: DEXAMETHASONE
     Route: 042
     Dates: start: 20190612, end: 20191112
  75. DEXAMETHASONE [Concomitant]
     Active Substance: DEXAMETHASONE
     Route: 042
     Dates: start: 20170303, end: 20171003
  76. DEXAMETHASONE [Concomitant]
     Active Substance: DEXAMETHASONE
     Route: 042
     Dates: start: 20170303, end: 20171003
  77. DEXAMETHASONE [Concomitant]
     Active Substance: DEXAMETHASONE
     Route: 042
     Dates: start: 20170303, end: 20171003
  78. DEXAMETHASONE [Concomitant]
     Active Substance: DEXAMETHASONE
     Route: 042
     Dates: start: 20170303, end: 20171003
  79. DEXAMETHASONE [Concomitant]
     Active Substance: DEXAMETHASONE
     Route: 042
     Dates: start: 20200924
  80. DEXAMETHASONE [Concomitant]
     Active Substance: DEXAMETHASONE
     Route: 042
     Dates: start: 20200924
  81. DEXAMETHASONE [Concomitant]
     Active Substance: DEXAMETHASONE
     Route: 042
     Dates: start: 20200924
  82. DEXAMETHASONE [Concomitant]
     Active Substance: DEXAMETHASONE
     Route: 042
     Dates: start: 20190612, end: 20191112
  83. INSULIN GLARGINE [Concomitant]
     Active Substance: INSULIN GLARGINE
     Indication: Product used for unknown indication
     Route: 065
     Dates: start: 20190901
  84. INSULIN GLARGINE [Concomitant]
     Active Substance: INSULIN GLARGINE
     Route: 065
     Dates: start: 20190901
  85. INSULIN GLARGINE [Concomitant]
     Active Substance: INSULIN GLARGINE
     Route: 065
     Dates: start: 20190901
  86. INSULIN GLARGINE [Concomitant]
     Active Substance: INSULIN GLARGINE
     Route: 065
     Dates: start: 20190901
  87. INSULIN GLARGINE [Concomitant]
     Active Substance: INSULIN GLARGINE
     Route: 065
     Dates: start: 20190901
  88. INSULIN GLARGINE [Concomitant]
     Active Substance: INSULIN GLARGINE
     Route: 065
     Dates: start: 20190901
  89. INSULIN GLARGINE [Concomitant]
     Active Substance: INSULIN GLARGINE
     Route: 065
     Dates: start: 20190901
  90. INSULIN GLARGINE [Concomitant]
     Active Substance: INSULIN GLARGINE
     Route: 065
     Dates: start: 20190901
  91. CHLORPHENIRAMINE MALEATE [Concomitant]
     Active Substance: CHLORPHENIRAMINE MALEATE
     Indication: Product used for unknown indication
     Route: 065
     Dates: start: 20200924
  92. ERTAPENEM [Concomitant]
     Active Substance: ERTAPENEM
     Indication: Product used for unknown indication
     Dosage: 1 G, QD
     Route: 042
     Dates: start: 20200813, end: 20200828
  93. ONDANSETRON [Concomitant]
     Active Substance: ONDANSETRON
     Indication: Product used for unknown indication
     Route: 042
     Dates: start: 20200924
  94. Cimetidina [Concomitant]
     Indication: Product used for unknown indication
     Route: 042
     Dates: start: 20200924
  95. FENTANYL [Concomitant]
     Active Substance: FENTANYL
     Indication: Product used for unknown indication
     Route: 065
     Dates: start: 20190612, end: 20191112
  96. FENTANYL [Concomitant]
     Active Substance: FENTANYL
     Route: 065
  97. FENTANYL [Concomitant]
     Active Substance: FENTANYL
     Route: 065
  98. INSULIN GLARGINE [Concomitant]
     Active Substance: INSULIN GLARGINE
     Indication: Product used for unknown indication
     Route: 065
  99. INSULIN GLARGINE [Concomitant]
     Active Substance: INSULIN GLARGINE
     Route: 065
  100. INSULIN GLARGINE [Concomitant]
     Active Substance: INSULIN GLARGINE
     Route: 065
  101. ATENOLOL [Concomitant]
     Active Substance: ATENOLOL
     Indication: Product used for unknown indication
     Route: 065
  102. ATENOLOL [Concomitant]
     Active Substance: ATENOLOL
     Route: 065
  103. ATENOLOL [Concomitant]
     Active Substance: ATENOLOL
     Route: 065
  104. GLYCOPYRROLATE [Concomitant]
     Active Substance: GLYCOPYRROLATE
     Indication: Product used for unknown indication
     Route: 065
  105. PREDNISONE [Concomitant]
     Active Substance: PREDNISONE
     Indication: Product used for unknown indication
     Route: 065
  106. FUROSEMIDE [Concomitant]
     Active Substance: FUROSEMIDE
     Indication: Product used for unknown indication
     Route: 065
     Dates: start: 20210901
  107. PANTOPRAZOLE SODIUM [Concomitant]
     Active Substance: PANTOPRAZOLE SODIUM
     Indication: Breast cancer metastatic
     Route: 065
     Dates: start: 20210901

REACTIONS (12)
  - Cardiac failure [Fatal]
  - Hypertrophic cardiomyopathy [Recovered/Resolved]
  - Fatigue [Recovered/Resolved]
  - Epistaxis [Recovered/Resolved]
  - Palmar-plantar erythrodysaesthesia syndrome [Recovered/Resolved]
  - Thrombocytopenia [Recovered/Resolved]
  - Thrombocytopenia [Recovered/Resolved]
  - Thrombocytopenia [Recovered/Resolved]
  - Vitamin D deficiency [Recovered/Resolved]
  - Blood bilirubin increased [Recovered/Resolved]
  - Alanine aminotransferase increased [Recovered/Resolved]
  - Aspartate aminotransferase increased [Recovered/Resolved]

NARRATIVE: CASE EVENT DATE: 20180320
